FAERS Safety Report 6996525-5 (Version None)
Quarter: 2010Q3

REPORT INFORMATION
  Report Type: 
  Country: None (occurrence: None)
  Receive Date: 20100918
  Receipt Date: 20090319
  Transmission Date: 20110219
  Serious: No
  Sender: FDA-Public Use
  Company Number: US-WYE-H08653809

PATIENT
  Sex: Male
  Weight: 61.29 kg

DRUGS (3)
  1. EFFEXOR XR [Suspect]
     Indication: DEPRESSION
     Route: 048
     Dates: start: 20080201
  2. EFFEXOR XR [Suspect]
     Route: 048
     Dates: end: 20090201
  3. WELLBUTRIN [Concomitant]
     Indication: DEPRESSION
     Dates: start: 20090101

REACTIONS (7)
  - DYSGEUSIA [None]
  - FEELING ABNORMAL [None]
  - HYPERHIDROSIS [None]
  - LIBIDO DECREASED [None]
  - MEMORY IMPAIRMENT [None]
  - PAROSMIA [None]
  - URINARY RETENTION [None]
